FAERS Safety Report 6575646-5 (Version None)
Quarter: 2010Q1

REPORT INFORMATION
  Report Type: 
  Country: None (occurrence: None)
  Receive Date: 20100209
  Receipt Date: 20100203
  Transmission Date: 20100710
  Serious: Yes (Other)
  Sender: FDA-Public Use
  Company Number: GB-PFIZER INC-2007064883

PATIENT
  Age: 40 Year
  Sex: Male

DRUGS (3)
  1. METHYLPREDNISOLONE ACETATE [Suspect]
     Indication: ANGIOIMMUNOBLASTIC T-CELL LYMPHOMA
     Dosage: 1 G, CYCLIC
     Dates: start: 20010601, end: 20050301
  2. CISPLATIN [Suspect]
     Indication: ANGIOIMMUNOBLASTIC T-CELL LYMPHOMA
     Dosage: 100 MG/M2, CYCLIC
     Dates: start: 20010601, end: 20050301
  3. GEMCITABINE [Suspect]
     Indication: ANGIOIMMUNOBLASTIC T-CELL LYMPHOMA
     Dosage: 1000 MG/M2, CYCLIC
     Dates: start: 20010601, end: 20050301

REACTIONS (1)
  - NEUTROPENIC SEPSIS [None]
